FAERS Safety Report 5826623-0 (Version None)
Quarter: 2008Q3

REPORT INFORMATION
  Report Type: 
  Country: None (occurrence: None)
  Receive Date: 20080728
  Receipt Date: 20080728
  Transmission Date: 20090109
  Serious: Yes (Other)
  Sender: FDA-Public Use
  Company Number: None

PATIENT
  Age: 49 Year
  Sex: Female
  Weight: 83.9154 kg

DRUGS (1)
  1. FLUCONAZOLE [Suspect]
     Indication: FUNGAL SKIN INFECTION
     Dosage: 200MG 1X/WEEK X 7WKS PO
     Route: 048
     Dates: start: 20080609, end: 20080723

REACTIONS (4)
  - ASTHENIA [None]
  - EYELID OEDEMA [None]
  - LIP SWELLING [None]
  - THROAT TIGHTNESS [None]
